FAERS Safety Report 21610593 (Version 1)
Quarter: 2022Q4

REPORT INFORMATION
  Report Type: Spontaneous
  Country: AU (occurrence: None)
  Receive Date: 20221117
  Receipt Date: 20221117
  Transmission Date: 20230113
  Serious: Yes (Death, Hospitalization)
  Sender: FDA-Public Use
  Company Number: 2022A381375

PATIENT
  Age: 40 Year
  Sex: Female

DRUGS (10)
  1. QUETIAPINE [Suspect]
     Active Substance: QUETIAPINE
     Indication: Product used for unknown indication
     Dosage: UNKNOWN
     Route: 065
  2. ATORVASTATIN [Suspect]
     Active Substance: ATORVASTATIN
     Indication: Product used for unknown indication
     Dosage: UNKNOWN
     Route: 065
  3. COMIRNATY [Suspect]
     Active Substance: TOZINAMERAN
     Indication: Product used for unknown indication
     Dosage: 1 DOSE UNSPECIFIED
     Route: 030
     Dates: start: 20210707
  4. COMIRNATY [Suspect]
     Active Substance: TOZINAMERAN
     Indication: Product used for unknown indication
     Dosage: UNKNOWN
     Route: 065
     Dates: start: 20210728
  5. COMIRNATY [Suspect]
     Active Substance: TOZINAMERAN
     Indication: Product used for unknown indication
     Dosage: UNKNOWN
     Route: 065
     Dates: start: 20220121
  6. ESCITALOPRAM [Suspect]
     Active Substance: ESCITALOPRAM OXALATE
     Indication: Product used for unknown indication
     Dosage: UNKNOWN
     Route: 065
  7. IBUPROFEN [Suspect]
     Active Substance: IBUPROFEN
     Indication: Product used for unknown indication
     Dosage: UNKNOWN
     Route: 065
  8. PANADOL [Suspect]
     Active Substance: ACETAMINOPHEN
     Indication: Product used for unknown indication
     Dosage: UNKNOWN
     Route: 065
  9. ALLOPURINOL [Concomitant]
     Active Substance: ALLOPURINOL
     Indication: Product used for unknown indication
     Dosage: UNKNOWN
     Route: 065
  10. THIAMINE HYDROCHLORIDE [Concomitant]
     Active Substance: THIAMINE HYDROCHLORIDE
     Indication: Product used for unknown indication
     Dosage: UNKNOWN
     Route: 065

REACTIONS (27)
  - Abdominal pain [Fatal]
  - Acute kidney injury [Fatal]
  - Blood creatine phosphokinase increased [Fatal]
  - Cerebral infarction [Fatal]
  - Decreased appetite [Fatal]
  - Electrocardiogram abnormal [Fatal]
  - Haematuria [Fatal]
  - Headache [Fatal]
  - Hypogammaglobulinaemia [Fatal]
  - Intestinal ischaemia [Fatal]
  - Liver injury [Fatal]
  - Malaise [Fatal]
  - Metabolic disorder [Fatal]
  - Multiple organ dysfunction syndrome [Fatal]
  - Myalgia [Fatal]
  - Myopathy [Fatal]
  - Myositis [Fatal]
  - Ovarian cancer [Fatal]
  - Pain in extremity [Fatal]
  - Pneumonia [Fatal]
  - Rhabdomyolysis [Fatal]
  - Septic shock [Fatal]
  - Tachycardia [Fatal]
  - Thrombocytopenia [Fatal]
  - Thrombosis [Fatal]
  - Vasoplegia syndrome [Fatal]
  - Vomiting [Fatal]

NARRATIVE: CASE EVENT DATE: 20220121
